FAERS Safety Report 18365029 (Version 2)
Quarter: 2020Q4

REPORT INFORMATION
  Report Type: Spontaneous
  Country: US (occurrence: US)
  Receive Date: 20201009
  Receipt Date: 20201013
  Transmission Date: 20210114
  Serious: No
  Sender: FDA-Public Use
  Company Number: US-TORRENT-00010455

PATIENT
  Sex: Female
  Weight: 46 kg

DRUGS (2)
  1. FELODIPINE EXTENDED-RELEASE TABLETS USP [Suspect]
     Active Substance: FELODIPINE
     Indication: PRODUCT USED FOR UNKNOWN INDICATION
     Dosage: UNKNOWN
     Dates: start: 202009
  2. LISINOPRIL. [Concomitant]
     Active Substance: LISINOPRIL
     Indication: PRODUCT USED FOR UNKNOWN INDICATION
     Dosage: UNKNOWN

REACTIONS (4)
  - Malaise [Unknown]
  - Product odour abnormal [Unknown]
  - Nausea [Unknown]
  - Product taste abnormal [Unknown]

NARRATIVE: CASE EVENT DATE: 202009
